FAERS Safety Report 19516716 (Version 1)
Quarter: 2021Q3

REPORT INFORMATION
  Report Type: Spontaneous
  Country: GB (occurrence: GB)
  Receive Date: 20210711
  Receipt Date: 20210711
  Transmission Date: 20211014
  Serious: Yes (Life-Threatening, Hospitalization, Disabling, Other)
  Sender: FDA-Public Use
  Company Number: GB-UCBSA-2021032026

PATIENT
  Sex: Male

DRUGS (3)
  1. SINEMET [Concomitant]
     Active Substance: CARBIDOPA\LEVODOPA
     Indication: ILL-DEFINED DISORDER
  2. ROTIGOTINE [Suspect]
     Active Substance: ROTIGOTINE
     Indication: PARKINSON^S DISEASE
     Dosage: 2MG/4MG ALTERNATE DAYS
     Route: 061
  3. AMANTADINE HYDROCHLORIDE. [Concomitant]
     Active Substance: AMANTADINE HYDROCHLORIDE
     Indication: ILL-DEFINED DISORDER

REACTIONS (4)
  - Neuroleptic malignant syndrome [Not Recovered/Not Resolved]
  - Parkinsonian crisis [Not Recovered/Not Resolved]
  - Medication error [Unknown]
  - Dystonia [Not Recovered/Not Resolved]
